FAERS Safety Report 24723611 (Version 1)
Quarter: 2024Q4

REPORT INFORMATION
  Report Type: Spontaneous
  Country: US (occurrence: US)
  Receive Date: 20241211
  Receipt Date: 20241211
  Transmission Date: 20250115
  Serious: No
  Sender: SANOFI AVENTIS
  Company Number: US-SA-2024SA337508

PATIENT
  Age: 78 Year
  Sex: Male
  Weight: 84.09 kg

DRUGS (25)
  1. DUPIXENT [Suspect]
     Active Substance: DUPILUMAB
     Indication: Neurodermatitis
     Dosage: 600 MG, 1X
     Route: 058
     Dates: start: 20241105, end: 20241105
  2. DUPIXENT [Suspect]
     Active Substance: DUPILUMAB
     Dosage: 300 MG, QOW
     Route: 058
     Dates: start: 202411
  3. JARDIANCE [Concomitant]
     Active Substance: EMPAGLIFLOZIN
  4. PREGABALIN [Concomitant]
     Active Substance: PREGABALIN
  5. ATORVASTATIN CALCIUM [Concomitant]
     Active Substance: ATORVASTATIN CALCIUM
  6. PIMECROLIMUS [Concomitant]
     Active Substance: PIMECROLIMUS
  7. Comirnaty [Concomitant]
  8. TRAMADOL HCL [Concomitant]
     Active Substance: TRAMADOL HYDROCHLORIDE
  9. ISOSORBIDE DINITRATE [Concomitant]
     Active Substance: ISOSORBIDE DINITRATE
  10. XARELTO [Concomitant]
     Active Substance: RIVAROXABAN
  11. TAMSULOSIN HYDROCHLORIDE [Concomitant]
     Active Substance: TAMSULOSIN HYDROCHLORIDE
  12. DULOXETINE HYDROCHLORIDE [Concomitant]
     Active Substance: DULOXETINE HYDROCHLORIDE
  13. ZOLPIDEM TARTRATE [Concomitant]
     Active Substance: ZOLPIDEM TARTRATE
  14. OMEPRAZOLE [Concomitant]
     Active Substance: OMEPRAZOLE
  15. ASPIRIN [Concomitant]
     Active Substance: ASPIRIN
  16. BUMETANIDE [Concomitant]
     Active Substance: BUMETANIDE
  17. REPAGLINIDE [Concomitant]
     Active Substance: DULOXETINE HYDROCHLORIDE\REPAGLINIDE\TICAGRELOR
  18. TRIAMCINOLONE ACETONIDE [Concomitant]
     Active Substance: TRIAMCINOLONE ACETONIDE
  19. ENTRESTO [Concomitant]
     Active Substance: SACUBITRIL\VALSARTAN
  20. CARVEDILOL [Concomitant]
     Active Substance: CARVEDILOL
  21. TRIVALENT INFLUENZA VACCINE [Concomitant]
  22. CLONAZEPAM [Concomitant]
     Active Substance: CLONAZEPAM
  23. SEMGLEE [Concomitant]
  24. Iron plus [Concomitant]
  25. HYDROXYUREA [Concomitant]
     Active Substance: HYDROXYUREA

REACTIONS (3)
  - Sleep disorder [Not Recovered/Not Resolved]
  - Fatigue [Not Recovered/Not Resolved]
  - Arthralgia [Not Recovered/Not Resolved]

NARRATIVE: CASE EVENT DATE: 20241105
